FAERS Safety Report 5326362-9 (Version None)
Quarter: 2007Q2

REPORT INFORMATION
  Report Type: 
  Country: None (occurrence: None)
  Receive Date: 20070516
  Receipt Date: 20070508
  Transmission Date: 20071010
  Serious: Yes (Hospitalization)
  Sender: FDA-Public Use
  Company Number: B0469440A

PATIENT
  Age: 59 Year
  Sex: Male

DRUGS (5)
  1. CLAVURION [Suspect]
     Indication: UPPER RESPIRATORY TRACT INFECTION
     Dosage: 875MG THREE TIMES PER DAY
     Route: 048
     Dates: start: 20070215, end: 20070221
  2. ATENOLOL [Concomitant]
     Indication: HYPERTENSION
     Dosage: 50MG UNKNOWN
     Route: 048
     Dates: start: 19970401
  3. LINATIL [Concomitant]
     Indication: HYPERTENSION
     Dosage: 5MG UNKNOWN
     Route: 048
     Dates: start: 19970401
  4. SIMVASTATIN [Concomitant]
     Dosage: 10MG UNKNOWN
     Route: 048
     Dates: start: 20040401
  5. PRIMASPAN [Concomitant]
     Indication: CORONARY ARTERY DISEASE
     Dosage: 1TAB PER DAY
     Route: 048
     Dates: start: 20040401

REACTIONS (8)
  - BLOOD BILIRUBIN INCREASED [None]
  - CHROMATURIA [None]
  - FAECES PALE [None]
  - FATIGUE [None]
  - HEPATIC ENZYME INCREASED [None]
  - JAUNDICE [None]
  - PRURITUS [None]
  - VOMITING [None]
